FAERS Safety Report 18279036 (Version 3)
Quarter: 2020Q4

REPORT INFORMATION
  Report Type: Spontaneous
  Country: US (occurrence: US)
  Receive Date: 20200917
  Receipt Date: 20201020
  Transmission Date: 20210113
  Serious: No
  Sender: FDA-Public Use
  Company Number: US-ASTRAZENECA-2020SF17959

PATIENT
  Age: 19937 Day
  Sex: Female
  Weight: 86.2 kg

DRUGS (3)
  1. FOLIC ACID. [Concomitant]
     Active Substance: FOLIC ACID
     Route: 048
  2. BUDESONIDE AND FORMOTEROL [Suspect]
     Active Substance: BUDESONIDE\FORMOTEROL
     Indication: ASTHMA
     Dosage: 80/4.5MCG 2 PUFFS TWICE DAILY
     Route: 055
     Dates: start: 201908
  3. METFORMIN [Concomitant]
     Active Substance: METFORMIN HYDROCHLORIDE
     Indication: DIABETES MELLITUS
     Route: 048

REACTIONS (5)
  - Eye disorder [Not Recovered/Not Resolved]
  - Candida infection [Not Recovered/Not Resolved]
  - Wrong technique in device usage process [Unknown]
  - Product taste abnormal [Unknown]
  - Drug delivery system malfunction [Not Recovered/Not Resolved]

NARRATIVE: CASE EVENT DATE: 20200903
